FAERS Safety Report 9081577 (Version 1)
Quarter: 2013Q1

REPORT INFORMATION
  Report Type: Report from Study
  Country: US (occurrence: US)
  Receive Date: 20130130
  Receipt Date: 20130130
  Transmission Date: 20140127
  Serious: No
  Sender: FDA-Public Use
  Company Number: US-ABBOTT-12P-163-0954808-00

PATIENT
  Sex: 0
  Weight: 125.76 kg

DRUGS (5)
  1. HUMIRA 40 MG/0.8 ML PEN [Suspect]
     Indication: INFLAMMATION
     Dates: start: 201203, end: 201206
  2. HUMIRA 40 MG/0.8 ML PEN [Suspect]
     Dates: start: 201206
  3. VICODIN [Suspect]
     Indication: PRODUCT USED FOR UNKNOWN INDICATION
  4. UNKNOWN MUSCLE RELAXER [Concomitant]
     Indication: PRODUCT USED FOR UNKNOWN INDICATION
  5. BIRTH CONTROL PILL [Concomitant]
     Indication: PRODUCT USED FOR UNKNOWN INDICATION

REACTIONS (2)
  - Off label use [Not Recovered/Not Resolved]
  - Amenorrhoea [Not Recovered/Not Resolved]
